FAERS Safety Report 7086409-9 (Version None)
Quarter: 2010Q4

REPORT INFORMATION
  Report Type: 
  Country: None (occurrence: None)
  Receive Date: 20101028
  Receipt Date: 20101017
  Transmission Date: 20110411
  Serious: Yes (Life-Threatening)
  Sender: FDA-Public Use
  Company Number: DZ-003953

PATIENT
  Sex: Female
  Weight: 22 kg

DRUGS (2)
  1. MINIRIN [Suspect]
     Indication: ENURESIS
     Dosage: (0.2 MG ORAL) ; (0.2 MG ORAL)
     Route: 048
     Dates: start: 20100816, end: 20100819
  2. MINIRIN [Suspect]
     Indication: ENURESIS
     Dosage: (0.2 MG ORAL) ; (0.2 MG ORAL)
     Route: 048
     Dates: start: 20100821, end: 20100821

REACTIONS (3)
  - ERYTHEMA [None]
  - FACE OEDEMA [None]
  - URTICARIA [None]
